FAERS Safety Report 7421080-5 (Version None)
Quarter: 2011Q2

REPORT INFORMATION
  Report Type: 
  Country: None (occurrence: None)
  Receive Date: 20110418
  Receipt Date: 20110323
  Transmission Date: 20111010
  Serious: No
  Sender: FDA-Public Use
  Company Number: US-B.I. PHARMACEUTICALS,INC./RIDGEFIELD-2011-BP-09008BP

PATIENT
  Sex: Female

DRUGS (8)
  1. CRESTOR [Concomitant]
  2. FISH OIL [Concomitant]
  3. METOPROLOL [Concomitant]
     Indication: ATRIAL FIBRILLATION
  4. M.V.I. [Concomitant]
  5. PRADAXA [Suspect]
     Indication: ATRIAL FIBRILLATION
     Dosage: 300 MG
     Route: 048
     Dates: start: 20110201
  6. POTASSIUM [Concomitant]
  7. HYDROCHLOROTHIAZIDE [Concomitant]
  8. COQ10 [Concomitant]

REACTIONS (2)
  - PAIN [None]
  - HERPES ZOSTER [None]
